FAERS Safety Report 8976330 (Version 1)
Quarter: 2012Q4

REPORT INFORMATION
  Report Type: Report from Study
  Country: JP (occurrence: JP)
  Receive Date: 20121220
  Receipt Date: 20121220
  Transmission Date: 20130627
  Serious: Yes (Other)
  Sender: FDA-Public Use
  Company Number: JP-ROCHE-1162469

PATIENT
  Age: 67 Year
  Sex: Female
  Weight: 49 kg

DRUGS (6)
  1. TOCILIZUMAB [Suspect]
     Indication: RHEUMATOID ARTHRITIS
     Route: 041
     Dates: start: 20120413, end: 20120706
  2. TOCILIZUMAB [Interacting]
     Indication: RHEUMATOID ARTHRITIS
     Route: 041
     Dates: start: 20120831
  3. RHEUMATREX [Interacting]
     Indication: RHEUMATOID ARTHRITIS
     Route: 048
     Dates: end: 20120803
  4. RHEUMATREX [Interacting]
     Indication: RHEUMATOID ARTHRITIS
     Route: 048
     Dates: start: 20120804
  5. FOLIAMIN [Concomitant]
     Indication: PROPHYLAXIS
     Dosage: Dosage is uncertain.
     Route: 048
  6. TAKEPRON [Concomitant]
     Indication: PROPHYLAXIS
     Dosage: Dosage is uncertain.
     Route: 048

REACTIONS (2)
  - White blood cell count decreased [Recovered/Resolved]
  - Drug interaction [Unknown]
